FAERS Safety Report 6893385-8 (Version None)
Quarter: 2010Q3

REPORT INFORMATION
  Report Type: 
  Country: None (occurrence: None)
  Receive Date: 20100731
  Receipt Date: 20090821
  Transmission Date: 20110219
  Serious: No
  Sender: FDA-Public Use
  Company Number: US-PFIZER INC-2009258344

PATIENT
  Sex: Female
  Weight: 77.1 kg

DRUGS (9)
  1. LIPITOR [Suspect]
  2. SIMVASTATIN [Suspect]
     Indication: BLOOD TRIGLYCERIDES INCREASED
     Dosage: [NIACIN ER 500 MG]/[SIMVASTATIN 20 MG] DAILY
     Dates: start: 20090101, end: 20090701
  3. SIMVASTATIN [Suspect]
     Indication: LOW DENSITY LIPOPROTEIN INCREASED
  4. SIMVASTATIN [Suspect]
     Indication: HIGH DENSITY LIPOPROTEIN DECREASED
  5. METFORMIN HYDROCHLORIDE/SITAGLIPTIN [Concomitant]
  6. LISINOPRIL [Concomitant]
  7. METOPROLOL [Concomitant]
  8. LEVOTHYROXINE SODIUM [Concomitant]
     Dosage: 50 UG, UNK
  9. ACETYLSALICYLIC ACID [Concomitant]
     Dosage: 325 MG, UNK

REACTIONS (4)
  - FEELING HOT [None]
  - HYPERHIDROSIS [None]
  - MOBILITY DECREASED [None]
  - MUSCULAR WEAKNESS [None]
